FAERS Safety Report 6612541-7 (Version None)
Quarter: 2010Q1

REPORT INFORMATION
  Report Type: 
  Country: None (occurrence: None)
  Receive Date: 20100223
  Receipt Date: 20100210
  Transmission Date: 20100710
  Serious: Yes (Hospitalization)
  Sender: FDA-Public Use
  Company Number: 1-21673104

PATIENT
  Sex: Male

DRUGS (10)
  1. FENTANYL-75 [Suspect]
     Dosage: 75 MCG/HR, TRANSDERMAL
     Route: 062
     Dates: start: 20100128
  2. MORPHINE SULFATE [Suspect]
     Indication: CANCER PAIN
     Dosage: 260 MG PER DAY
  3. OMEPRAZOLE [Concomitant]
  4. INSULIN [Concomitant]
  5. LANSOPRAZOLE [Concomitant]
  6. IMIPRAMINE [Concomitant]
  7. NOVOLOG [Concomitant]
  8. PROTOSEDYL (CINCHOCAINE HYDROCHLORIDE AND HYDROCORTISONE) [Concomitant]
  9. SOMATULINE [Concomitant]
  10. VALOID  (CYCLIZINE) [Concomitant]

REACTIONS (2)
  - DRUG PRESCRIBING ERROR [None]
  - WEIGHT DECREASED [None]
